FAERS Safety Report 18130432 (Version 1)
Quarter: 2020Q3

REPORT INFORMATION
  Report Type: Spontaneous
  Country: GB (occurrence: GB)
  Receive Date: 20200810
  Receipt Date: 20200810
  Transmission Date: 20201103
  Serious: Yes (Other)
  Sender: FDA-Public Use
  Company Number: GB-MSNLABS-2020MSNSPO00245

PATIENT
  Sex: Male

DRUGS (1)
  1. FEBUXOSTAT TABLETS 120 MG [Suspect]
     Active Substance: FEBUXOSTAT
     Indication: GOUT
     Route: 065

REACTIONS (1)
  - Acute myocardial infarction [None]

NARRATIVE: CASE EVENT DATE: 20200713
